FAERS Safety Report 18263343 (Version 1)
Quarter: 2020Q3

REPORT INFORMATION
  Report Type: Spontaneous
  Country: GB (occurrence: GB)
  Receive Date: 20200914
  Receipt Date: 20200914
  Transmission Date: 20201103
  Serious: Yes (Other)
  Sender: FDA-Public Use
  Company Number: GB-MYLANLABS-2020M1077461

PATIENT
  Age: 67 Year
  Sex: Male
  Weight: 63 kg

DRUGS (10)
  1. SIMVASTATIN. [Concomitant]
     Active Substance: SIMVASTATIN
     Dosage: 1 DOSAGE FORM, QD, AT NIGHT.
     Dates: start: 20200811
  2. METHOTREXATE. [Concomitant]
     Active Substance: METHOTREXATE
     Dosage: 20 MILLIGRAM, QW
     Dates: start: 20191014
  3. ZAPAIN [Concomitant]
     Active Substance: ACETAMINOPHEN\CODEINE PHOSPHATE
     Dosage: UNK, ONE OR TWO TO BE TAKEN FOUR TIMES A DAY WHEN RE
     Dates: start: 20190405
  4. DICLOFENAC SODIUM. [Concomitant]
     Active Substance: DICLOFENAC SODIUM
     Dosage: 3 DOSAGE FORM, QD
     Dates: start: 20190405
  5. FOLIC ACID. [Concomitant]
     Active Substance: FOLIC ACID
     Dosage: UNK, AS DIRECTED BY HOSPITAL
     Dates: start: 20200811
  6. INDAPAMIDE. [Concomitant]
     Active Substance: INDAPAMIDE
     Dosage: 1 DOSAGE FORM, QD, EACH MORNING
     Dates: start: 20190405
  7. AMLODIPINE [Concomitant]
     Active Substance: AMLODIPINE BESYLATE
     Dosage: 1 DOSAGE FORM, QD
     Dates: start: 20191113
  8. ATORVASTATIN [Suspect]
     Active Substance: ATORVASTATIN
     Indication: PRODUCT USED FOR UNKNOWN INDICATION
     Dosage: 20 MILLIGRAM, QD
     Dates: start: 20200218
  9. ROSUVASTATIN. [Concomitant]
     Active Substance: ROSUVASTATIN
     Dosage: 1 DOSAGE FORM, QD
     Dates: start: 20200811, end: 20200811
  10. HYDROXYCHLOROQUINE SULFATE. [Concomitant]
     Active Substance: HYDROXYCHLOROQUINE SULFATE
     Dosage: 1 DOSAGE FORM, QD
     Dates: start: 20191216

REACTIONS (3)
  - Hyperhidrosis [Recovered/Resolved]
  - Fatigue [Recovered/Resolved]
  - Diarrhoea [Recovered/Resolved]

NARRATIVE: CASE EVENT DATE: 20200811
